FAERS Safety Report 13798335 (Version 6)
Quarter: 2017Q3

REPORT INFORMATION
  Report Type: Spontaneous
  Country: AU (occurrence: AU)
  Receive Date: 20170727
  Receipt Date: 20170918
  Transmission Date: 20171127
  Serious: Yes (Other)
  Sender: FDA-Public Use
  Company Number: PHHY2017AU105009

PATIENT
  Age: 62 Year
  Sex: Female

DRUGS (2)
  1. ANASTROZOLE. [Suspect]
     Active Substance: ANASTROZOLE
     Indication: BREAST CANCER METASTATIC
     Route: 065
  2. LETROZOLE. [Suspect]
     Active Substance: LETROZOLE
     Indication: BREAST CANCER METASTATIC
     Route: 065

REACTIONS (10)
  - Breast cancer metastatic [Unknown]
  - Hypersensitivity [Unknown]
  - White blood cell count abnormal [Unknown]
  - Haematocrit abnormal [Unknown]
  - Blood sodium abnormal [Unknown]
  - Rash generalised [Recovered/Resolved]
  - Blood alkaline phosphatase increased [Unknown]
  - Neutrophil count abnormal [Unknown]
  - Blood chloride abnormal [Unknown]
  - Alanine aminotransferase abnormal [Unknown]

NARRATIVE: CASE EVENT DATE: 20150409
